FAERS Safety Report 4521012-3 (Version None)
Quarter: 2004Q4

REPORT INFORMATION
  Report Type: 
  Country: None (occurrence: None)
  Receive Date: 20041206
  Receipt Date: 20041125
  Transmission Date: 20050328
  Serious: Yes (Hospitalization)
  Sender: FDA-Public Use
  Company Number: 2004-122860-NL

PATIENT
  Age: 64 Year
  Sex: Male

DRUGS (11)
  1. MIRTAZAPINE [Suspect]
     Indication: SLEEP DISORDER
     Dosage: 15 MG QD ORAL
     Route: 048
     Dates: start: 20040906, end: 20040924
  2. ACETYLSALICYLIC ACID [Suspect]
     Dosage: 100 MG QD ORAL
     Route: 048
     Dates: end: 20040924
  3. CITALOPRAM HYDROBROMIDE [Suspect]
     Dosage: 40 MG QD ORAL
     Route: 048
     Dates: start: 20040801
  4. PHENPROCOUMON [Suspect]
     Dosage: DF ORAL
     Route: 048
  5. LISINOPRIL [Suspect]
     Dosage: DF ORAL
     Route: 048
  6. BISOPROLOL FUMARATE [Suspect]
     Dosage: DF ORAL
     Route: 048
  7. ATORVASTATIN CALCIUM [Concomitant]
  8. PANTOPRAZOLE SODIUM [Concomitant]
  9. ISOPHANE INSULIN [Concomitant]
  10. INSULIN ASPART [Concomitant]
  11. NEURORUBIN [Concomitant]

REACTIONS (2)
  - CUTANEOUS VASCULITIS [None]
  - PYREXIA [None]
